FAERS Safety Report 10690483 (Version 1)
Quarter: 2015Q1

REPORT INFORMATION
  Report Type: Spontaneous
  Country: US (occurrence: None)
  Receive Date: 20150102
  Receipt Date: 20150102
  Transmission Date: 20150720
  Serious: Yes (Life-Threatening, Hospitalization)
  Sender: FDA-Public Use
  Company Number: None

PATIENT
  Age: 57 Year
  Sex: Male

DRUGS (1)
  1. FLUOROURACIL 500 MG [Suspect]
     Active Substance: FLUOROURACIL
     Indication: OESOPHAGEAL ADENOCARCINOMA
     Dosage: 4 DAY INFUSION INTO A VEIN
     Dates: start: 20131231, end: 20140104

REACTIONS (3)
  - Procedural complication [None]
  - Gastrointestinal necrosis [None]
  - Dihydropyrimidine dehydrogenase deficiency [None]

NARRATIVE: CASE EVENT DATE: 20131231
